FAERS Safety Report 5982602-4 (Version None)
Quarter: 2008Q4

REPORT INFORMATION
  Report Type: 
  Country: None (occurrence: None)
  Receive Date: 20081208
  Receipt Date: 20081128
  Transmission Date: 20090506
  Serious: Yes (Hospitalization)
  Sender: FDA-Public Use
  Company Number: PHHY2008JP28733

PATIENT

DRUGS (3)
  1. COMTAN [Suspect]
     Indication: PARKINSON'S DISEASE
     Dosage: 100 MG
     Route: 048
     Dates: end: 20081112
  2. LEVODOPA [Suspect]
     Dosage: 300 MG
     Route: 048
     Dates: end: 20081112
  3. ARTANE [Concomitant]
     Dosage: UNK
     Route: 048
     Dates: start: 20081112

REACTIONS (1)
  - ANXIETY [None]
